FAERS Safety Report 13455745 (Version 1)
Quarter: 2017Q2

REPORT INFORMATION
  Report Type: Spontaneous
  Country: US (occurrence: US)
  Receive Date: 20170418
  Receipt Date: 20170418
  Transmission Date: 20170830
  Serious: No
  Sender: FDA-Public Use
  Company Number: US-BAYER-2017-072771

PATIENT
  Age: 86 Year
  Sex: Female
  Weight: 63.49 kg

DRUGS (8)
  1. ALEVE [Suspect]
     Active Substance: NAPROXEN SODIUM
     Indication: PAIN IN EXTREMITY
     Dosage: 1 DF, BID
     Route: 048
  2. LISINOPRIL. [Concomitant]
     Active Substance: LISINOPRIL
  3. METFORMIN [Concomitant]
     Active Substance: METFORMIN HYDROCHLORIDE
  4. ALEVE PM [Suspect]
     Active Substance: DIPHENHYDRAMINE HYDROCHLORIDE\NAPROXEN SODIUM
     Indication: PAIN IN EXTREMITY
     Dosage: 1 DF, QD
     Route: 048
     Dates: start: 20170413
  5. LYRICA [Concomitant]
     Active Substance: PREGABALIN
  6. GLIMEPIRIDE. [Concomitant]
     Active Substance: GLIMEPIRIDE
  7. AMLODIPINE [Concomitant]
     Active Substance: AMLODIPINE BESYLATE
  8. ASPIRIN. [Concomitant]
     Active Substance: ASPIRIN
     Indication: PAIN IN EXTREMITY
     Dosage: 4 ASPIRIN EVERY 4 HOURS

REACTIONS (8)
  - Product use issue [Unknown]
  - Contraindicated product administered [None]
  - Drug ineffective [Unknown]
  - Muscular weakness [Recovering/Resolving]
  - Hyperhidrosis [Recovered/Resolved]
  - Wrong technique in product usage process [Unknown]
  - Gait disturbance [None]
  - Incorrect dose administered [Unknown]

NARRATIVE: CASE EVENT DATE: 20170413
